FAERS Safety Report 21799996 (Version 3)
Quarter: 2023Q2

REPORT INFORMATION
  Report Type: Report from Study
  Country: US (occurrence: US)
  Receive Date: 20221230
  Receipt Date: 20230404
  Transmission Date: 20230722
  Serious: Yes (Hospitalization, Disabling, Other)
  Sender: FDA-Public Use
  Company Number: US-GILEAD-2022-0611222

PATIENT
  Age: 61 Year
  Sex: Male
  Weight: 117.91 kg

DRUGS (13)
  1. AMBRISENTAN [Suspect]
     Active Substance: AMBRISENTAN
     Indication: Pulmonary hypertension
     Dosage: 10 MG, QD
     Route: 065
     Dates: start: 20220331
  2. AMBRISENTAN [Suspect]
     Active Substance: AMBRISENTAN
     Dosage: 10 MG, QD
     Route: 048
     Dates: start: 20220331
  3. ELIQUIS [Concomitant]
     Active Substance: APIXABAN
     Indication: Atrial fibrillation
  4. SILDENAFIL [Concomitant]
     Active Substance: SILDENAFIL
     Indication: Pulmonary hypertension
     Dosage: 100 MG, 1/2 TABLET THREE TIMES A DAY
     Route: 048
  5. AMLODIPINE [Concomitant]
     Active Substance: AMLODIPINE BESYLATE
     Indication: Blood pressure measurement
     Dosage: 10 MG, QD
     Route: 048
  6. ASPIRIN [Concomitant]
     Active Substance: ASPIRIN
     Indication: Anticoagulant therapy
     Dosage: 325 MG, QD
     Route: 048
  7. ATORVASTATIN [Concomitant]
     Active Substance: ATORVASTATIN
     Indication: Blood cholesterol
     Dosage: 80 MG, QD, 1/2 TABLET
     Route: 048
  8. DULOXETINE HYDROCHLORIDE [Concomitant]
     Active Substance: DULOXETINE HYDROCHLORIDE
     Indication: Neuralgia
     Dosage: 60 MG, QD
     Route: 048
  9. INSULIN ASPART [Concomitant]
     Active Substance: INSULIN ASPART
     Indication: Diabetes mellitus
     Dosage: 3 ML, TID. 100 UNITS/ML FLEXPEN, INJECT 25 UNITS SUBCUTANEOUSLY BEFORE MEALS
     Route: 058
  10. INSULIN GLARGINE [Concomitant]
     Active Substance: INSULIN GLARGINE
     Indication: Diabetes mellitus
     Dosage: 3 ML, QD, 100 UNITS/ML, 3ML SOLOSTAR INJECT 50 UNITS SUBCUTANEOUSLY AT SAME TIME EVERY DAY
     Route: 058
  11. LENALIDOMIDE [Concomitant]
     Active Substance: LENALIDOMIDE
     Indication: Plasma cell myeloma
     Dosage: 10 MG, QD, 21 DAYS OF A 28 DAYS CYCLE
     Route: 048
  12. LISINOPRIL [Concomitant]
     Active Substance: LISINOPRIL
     Indication: Blood pressure measurement
     Dosage: 20 MG, QD, 1/2 TABLET DAILY
     Route: 048
  13. METOPROLOL TARTRATE [Concomitant]
     Active Substance: METOPROLOL TARTRATE
     Indication: Blood pressure measurement
     Dosage: 50 MG, BID
     Route: 048

REACTIONS (5)
  - Cerebrovascular accident [Recovering/Resolving]
  - Blindness [Not Recovered/Not Resolved]
  - Amnesia [Not Recovered/Not Resolved]
  - Oxygen therapy [Unknown]
  - Dementia [Not Recovered/Not Resolved]

NARRATIVE: CASE EVENT DATE: 20220101
